FAERS Safety Report 12331015 (Version 2)
Quarter: 2016Q2

REPORT INFORMATION
  Report Type: Spontaneous
  Country: US (occurrence: US)
  Receive Date: 20160504
  Receipt Date: 20160506
  Transmission Date: 20160815
  Serious: Yes (Hospitalization)
  Sender: FDA-Public Use
  Company Number: US-BAYER-2016-085023

PATIENT
  Age: 53 Year
  Sex: Male
  Weight: 70.31 kg

DRUGS (1)
  1. ULTRAVIST [Suspect]
     Active Substance: IOPROMIDE
     Indication: COMPUTERISED TOMOGRAM
     Dosage: 370 ML INJECTED BY CT TECH IN CA.10 SECONDS
     Dates: start: 20160428, end: 20160428

REACTIONS (3)
  - Irritable bowel syndrome [None]
  - Pain [None]
  - Anaphylactic shock [Recovered/Resolved with Sequelae]
